FAERS Safety Report 11934370 (Version 1)
Quarter: 2016Q1

REPORT INFORMATION
  Report Type: Spontaneous
  Country: US (occurrence: US)
  Receive Date: 20160121
  Receipt Date: 20160121
  Transmission Date: 20160526
  Serious: No
  Sender: FDA-Public Use
  Company Number: US-PERRIGO-15US007495

PATIENT
  Age: 60 Year
  Sex: Female
  Weight: 95.24 kg

DRUGS (1)
  1. ACETAMINOPHEN\CAFFEINE\SALICYLATE [Suspect]
     Active Substance: ACETAMINOPHEN\CAFFEINE\SALICYLIC ACID
     Indication: WRONG DRUG ADMINISTERED
     Dosage: 3 TABLETS, SINGLE
     Route: 048
     Dates: start: 20150720, end: 20150720

REACTIONS (5)
  - Abdominal pain upper [Unknown]
  - Cold sweat [Unknown]
  - Vomiting [Unknown]
  - Headache [Unknown]
  - Wrong drug administered [Unknown]

NARRATIVE: CASE EVENT DATE: 20150720
